FAERS Safety Report 23366643 (Version 1)
Quarter: 2024Q1

REPORT INFORMATION
  Report Type: Spontaneous
  Country: US (occurrence: None)
  Receive Date: 20240104
  Receipt Date: 20240104
  Transmission Date: 20240410
  Serious: Yes (Hospitalization)
  Sender: FDA-Public Use
  Company Number: None

PATIENT
  Age: 42 Year
  Sex: Female
  Weight: 95.4 kg

DRUGS (3)
  1. INGREZZA [Suspect]
     Active Substance: VALBENAZINE
     Indication: Tardive dyskinesia
     Dosage: FREQUENCY : DAILY;?
     Route: 048
     Dates: start: 20231221, end: 20231228
  2. INGREZZA [Concomitant]
     Active Substance: VALBENAZINE
     Dates: start: 20231221, end: 20231227
  3. INGREZZA [Concomitant]
     Active Substance: VALBENAZINE
     Dates: start: 20231228, end: 20231228

REACTIONS (1)
  - Urticaria [None]

NARRATIVE: CASE EVENT DATE: 20231228
